FAERS Safety Report 25936115 (Version 1)
Quarter: 2025Q4

REPORT INFORMATION
  Report Type: Spontaneous
  Country: US (occurrence: US)
  Receive Date: 20251017
  Receipt Date: 20251017
  Transmission Date: 20260118
  Serious: Yes (Other)
  Sender: PURDUE
  Company Number: US-PURDUE-USA-2025-0321419

PATIENT
  Age: 20 Year
  Sex: Male
  Weight: 91 kg

DRUGS (2)
  1. HYDROCODONE BITARTRATE AND ACETAMINOPHEN [Suspect]
     Active Substance: ACETAMINOPHEN\HYDROCODONE BITARTRATE
     Indication: Product used for unknown indication
     Dosage: 5-325 MG
     Route: 048
  2. IBUPROFEN [Concomitant]
     Active Substance: IBUPROFEN
     Indication: Procedural pain
     Dosage: 600 MILLIGRAM
     Route: 065

REACTIONS (11)
  - Apnoeic attack [Unknown]
  - Delirium [Unknown]
  - Hallucination, visual [Unknown]
  - Paraesthesia [Unknown]
  - Movement disorder [Unknown]
  - Mental status changes [Unknown]
  - Pain [Unknown]
  - Communication disorder [Unknown]
  - Erythema [Unknown]
  - Tenderness [Unknown]
  - Amnesia [Unknown]
